FAERS Safety Report 21055758 (Version 2)
Quarter: 2022Q4

REPORT INFORMATION
  Report Type: Spontaneous
  Country: US (occurrence: US)
  Receive Date: 20220708
  Receipt Date: 20221014
  Transmission Date: 20230113
  Serious: No
  Sender: FDA-Public Use
  Company Number: US-VIIV HEALTHCARE LIMITED-US2022AMR100406

PATIENT
  Age: 53 Year
  Sex: Male
  Weight: 108.7 kg

DRUGS (28)
  1. CABENUVA [Suspect]
     Active Substance: CABOTEGRAVIR\RILPIVIRINE
     Indication: HIV infection
     Dosage: UNK, 600/900 MG
     Route: 030
     Dates: start: 20220330, end: 20220623
  2. CABENUVA [Suspect]
     Active Substance: CABOTEGRAVIR\RILPIVIRINE
  3. CABENUVA [Suspect]
     Active Substance: CABOTEGRAVIR\RILPIVIRINE
  4. BICTEGRAVIR + EMTRICITABINE + TENOFOVIR ALAFENAMIDE FUMARATE [Concomitant]
     Indication: HIV infection
     Dosage: UNK
     Dates: start: 20200807, end: 20220330
  5. BICTEGRAVIR + EMTRICITABINE + TENOFOVIR ALAFENAMIDE FUMARATE [Concomitant]
     Dosage: UNK
     Dates: start: 20220629
  6. APAP [Concomitant]
     Active Substance: ACETAMINOPHEN
     Indication: Product used for unknown indication
     Dosage: 650 MG, Z Q4H PRN
     Route: 048
  7. AMLODIPINE [Concomitant]
     Active Substance: AMLODIPINE BESYLATE
     Indication: Product used for unknown indication
     Dosage: 10 MG, QD DAILY
     Route: 048
  8. CITALOPRAM [Concomitant]
     Active Substance: CITALOPRAM HYDROBROMIDE
     Indication: Product used for unknown indication
     Dosage: 40 MG, QD DAILY
     Route: 048
  9. CALCIUM CITRATE + VITAMIN D3 [Concomitant]
     Indication: Product used for unknown indication
     Dosage: UNK, BID
     Route: 048
  10. CYCLOBENZAPRINE [Concomitant]
     Active Substance: CYCLOBENZAPRINE
     Indication: Product used for unknown indication
     Dosage: 5 MG, Z TIC
     Route: 048
  11. DOCUSATE SODIUM\SENNA LEAF [Concomitant]
     Active Substance: DOCUSATE SODIUM\SENNA LEAF
     Indication: Product used for unknown indication
     Dosage: 2 DF, BID PRN
     Route: 048
  12. HYDROXYZINE [Concomitant]
     Active Substance: HYDROXYZINE HYDROCHLORIDE
     Indication: Product used for unknown indication
     Dosage: 50 MG, TID PRN
     Route: 048
  13. LIDOCAINE [Concomitant]
     Active Substance: LIDOCAINE
     Indication: Product used for unknown indication
     Dosage: UNKTOPICAL FILM 3 PATCHES QHS
     Route: 061
  14. LOSARTAN [Concomitant]
     Active Substance: LOSARTAN
     Indication: Product used for unknown indication
     Dosage: 50 MG, BID
     Route: 048
  15. MAGNESIUM OXIDE [Concomitant]
     Active Substance: MAGNESIUM OXIDE
     Indication: Product used for unknown indication
     Dosage: 600 MG, BID
     Route: 048
  16. MELATONIN [Concomitant]
     Active Substance: MELATONIN
     Indication: Product used for unknown indication
     Dosage: 6 MG QHS PRN
     Route: 048
  17. MYCOPHENOLATE MOFETIL [Concomitant]
     Active Substance: MYCOPHENOLATE MOFETIL
     Indication: Product used for unknown indication
     Dosage: 1000 MG, BID
     Route: 048
  18. PANTOPRAZOLE [Concomitant]
     Active Substance: PANTOPRAZOLE
     Indication: Product used for unknown indication
     Dosage: 40 MG, QD DR
     Route: 048
  19. PRAVASTATIN [Concomitant]
     Active Substance: PRAVASTATIN
     Indication: Product used for unknown indication
     Dosage: 80 MG QHS
     Route: 048
  20. PREDNISONE [Concomitant]
     Active Substance: PREDNISONE
     Indication: Product used for unknown indication
     Dosage: 5 MG, QD
     Route: 048
  21. SIMETHICONE (DIMETHICONE) [Concomitant]
     Active Substance: DIMETHICONE
     Indication: Product used for unknown indication
     Dosage: 160 MG, QID CHEWABLE
     Route: 048
  22. SODIUM CHLORIDE [Concomitant]
     Active Substance: SODIUM CHLORIDE
     Indication: Product used for unknown indication
     Dosage: 1 PUFF(S), BID  1 SPRAY PRN
     Route: 045
  23. TACROLIMUS [Concomitant]
     Active Substance: TACROLIMUS
     Indication: Product used for unknown indication
     Dosage: 4.5 MG 2.5 MF QAM, 2 MG QPM
     Route: 048
  24. TAMSULOSIN [Concomitant]
     Active Substance: TAMSULOSIN
     Indication: Product used for unknown indication
     Dosage: 0.4 MG, QD
     Route: 048
  25. TORSEMIDE [Concomitant]
     Active Substance: TORSEMIDE
     Indication: Product used for unknown indication
     Dosage: 20 MG, QD PRN
     Route: 048
  26. TRAMADOL [Concomitant]
     Active Substance: TRAMADOL
     Indication: Product used for unknown indication
     Dosage: 50 MG, QID Q6H
     Route: 048
  27. TRAZODONE [Concomitant]
     Active Substance: TRAZODONE HYDROCHLORIDE
     Indication: Product used for unknown indication
     Dosage: 50 MG QHS
     Route: 048
  28. CETIRIZINE HYDROCHLORIDE [Concomitant]
     Active Substance: CETIRIZINE HYDROCHLORIDE
     Indication: Product used for unknown indication
     Dosage: 10 MG, QD
     Route: 048

REACTIONS (3)
  - Viral load increased [Recovered/Resolved]
  - Treatment failure [Recovered/Resolved]
  - Product use in unapproved therapeutic environment [Unknown]

NARRATIVE: CASE EVENT DATE: 20220330
